FAERS Safety Report 5506080-4 (Version None)
Quarter: 2007Q4

REPORT INFORMATION
  Report Type: 
  Country: None (occurrence: None)
  Receive Date: 20071105
  Receipt Date: 20071029
  Transmission Date: 20080405
  Serious: Yes (Hospitalization, Other)
  Sender: FDA-Public Use
  Company Number: PHEH2007US03393

PATIENT
  Age: 61 Year
  Sex: Female
  Weight: 86.167 kg

DRUGS (11)
  1. VIVELLE [Suspect]
     Indication: HORMONE REPLACEMENT THERAPY
  2. VIVELLE-DOT [Suspect]
     Indication: HORMONE REPLACEMENT THERAPY
  3. ESTRACE [Suspect]
     Indication: NIGHT SWEATS
  4. ESTRATAB [Suspect]
     Indication: NIGHT SWEATS
     Dosage: 0.625 MG, QD
  5. ESTROPIPATE [Suspect]
     Indication: AMNESIA
     Dosage: 1 MG, UNK
  6. PREMPRO [Suspect]
     Indication: AMNESIA
  7. PREMARIN [Suspect]
     Indication: AFFECTIVE DISORDER
     Dosage: 0.625 MG, UNK
  8. PROVERA [Suspect]
     Indication: HORMONE REPLACEMENT THERAPY
     Dosage: 2.5 MG, QD
  9. FISH OIL [Concomitant]
     Dosage: 2000 - 3000 MG QD
  10. ALPRAZOLAM [Concomitant]
     Dosage: 0.5 MG, PRN
  11. CELEBREX [Concomitant]
     Dosage: 100 MG, QD

REACTIONS (13)
  - BIOPSY BREAST ABNORMAL [None]
  - BREAST CANCER [None]
  - BREAST MASS [None]
  - DEPRESSION [None]
  - HAEMANGIOMA OF LIVER [None]
  - KNEE ARTHROPLASTY [None]
  - LIMB DISCOMFORT [None]
  - LUNG INFILTRATION [None]
  - LYMPHADENECTOMY [None]
  - MALIGNANT BREAST LUMP REMOVAL [None]
  - OEDEMA PERIPHERAL [None]
  - OESTROGEN RECEPTOR ASSAY POSITIVE [None]
  - PROGESTERONE RECEPTOR ASSAY POSITIVE [None]
